FAERS Safety Report 8213139-X (Version None)
Quarter: 2012Q1

REPORT INFORMATION
  Report Type: 
  Country: None (occurrence: None)
  Receive Date: 20120315
  Receipt Date: 20120313
  Transmission Date: 20120608
  Serious: Yes (Death, Hospitalization, Other)
  Sender: FDA-Public Use
  Company Number: AU-PFIZER INC-2012034708

PATIENT
  Age: 37 Year
  Sex: Female

DRUGS (1)
  1. EFFEXOR XR [Suspect]
     Dosage: UNK

REACTIONS (4)
  - VENTRICULAR TACHYCARDIA [None]
  - CARDIOMYOPATHY [None]
  - OVERDOSE [None]
  - CARDIOTOXICITY [None]
